FAERS Safety Report 14103500 (Version 1)
Quarter: 2017Q4

REPORT INFORMATION
  Report Type: Spontaneous
  Country: NL (occurrence: NL)
  Receive Date: 20171018
  Receipt Date: 20171018
  Transmission Date: 20180321
  Serious: Yes (Hospitalization, Other)
  Sender: FDA-Public Use
  Company Number: NL-TEVA-815701ROM

PATIENT
  Age: 57 Year
  Sex: Female

DRUGS (9)
  1. DIAZEPAM. [Suspect]
     Active Substance: DIAZEPAM
     Dosage: 15 MILLIGRAM DAILY;
     Route: 065
  2. OXYCODON [Suspect]
     Active Substance: OXYCODONE
     Dosage: 40 MILLIGRAM DAILY;
     Route: 065
  3. FENTANYL TEVA PLEISTER [Suspect]
     Active Substance: FENTANYL
     Dosage: 75 MCG
  4. PROMETHAZINE [Suspect]
     Active Substance: PROMETHAZINE\PROMETHAZINE HYDROCHLORIDE
     Dosage: 100 MILLIGRAM DAILY;
     Route: 065
  5. MELOXICAM. [Suspect]
     Active Substance: MELOXICAM
     Route: 065
  6. PREGABALINE [Suspect]
     Active Substance: PREGABALIN
     Dosage: 300 MILLIGRAM DAILY;
     Route: 065
  7. PANTOPRAZOL [Suspect]
     Active Substance: PANTOPRAZOLE SODIUM
     Dosage: 40 MILLIGRAM DAILY;
     Route: 065
  8. FENTANYL TEVA PLEISTER [Suspect]
     Active Substance: FENTANYL
     Indication: PRODUCT USED FOR UNKNOWN INDICATION
     Dosage: 150 MCG
     Route: 062
  9. TEMAZEPAM. [Suspect]
     Active Substance: TEMAZEPAM
     Dosage: 20 MILLIGRAM DAILY;
     Route: 065

REACTIONS (3)
  - Overdose [Unknown]
  - Coma [Recovered/Resolved]
  - Pelvic fracture [Unknown]

NARRATIVE: CASE EVENT DATE: 20170823
